FAERS Safety Report 15362171 (Version 1)
Quarter: 2018Q3

REPORT INFORMATION
  Report Type: Spontaneous
  Country: KR (occurrence: KR)
  Receive Date: 20180907
  Receipt Date: 20180907
  Transmission Date: 20181010
  Serious: Yes (Other)
  Sender: FDA-Public Use
  Company Number: PHHY2018KR087204

PATIENT
  Age: 56 Year
  Sex: Female

DRUGS (7)
  1. TRIAMCINOLONE ACETONIDE. [Suspect]
     Active Substance: TRIAMCINOLONE ACETONIDE
     Indication: NECROTISING SCLERITIS
     Dosage: 32 MG, QD
     Route: 048
  2. OCULAR LUBRICANT [Concomitant]
     Indication: NECROTISING SCLERITIS
     Dosage: UNK UNK, QD
     Route: 065
  3. SOLU?MEDROL [Suspect]
     Active Substance: METHYLPREDNISOLONE SODIUM SUCCINATE
     Indication: NECROTISING SCLERITIS
     Dosage: 1000 MG, QD
     Route: 042
  4. PREDNISOLONE. [Suspect]
     Active Substance: PREDNISOLONE
     Indication: NECROTISING SCLERITIS
     Dosage: 1 %, UNK
     Route: 061
  5. TACROLIMUS MONOHYDRATE [Concomitant]
     Active Substance: TACROLIMUS
     Indication: NECROTISING SCLERITIS
     Dosage: UNK UNK, QD
     Route: 065
  6. TRIAMCINOLONE ACETONIDE. [Suspect]
     Active Substance: TRIAMCINOLONE ACETONIDE
     Dosage: 5 INJECTIONS
     Route: 058
  7. NAPROXEN. [Concomitant]
     Active Substance: NAPROXEN
     Indication: NECROTISING SCLERITIS
     Dosage: 500 MG, QD
     Route: 065

REACTIONS (2)
  - Cataract [Unknown]
  - Product use in unapproved indication [Unknown]
